FAERS Safety Report 10168183 (Version 1)
Quarter: 2014Q2

REPORT INFORMATION
  Report Type: Spontaneous
  Country: US (occurrence: US)
  Receive Date: 20140512
  Receipt Date: 20140512
  Transmission Date: 20141212
  Serious: No
  Sender: FDA-Public Use
  Company Number: US-ASTRAZENECA-2013SE57375

PATIENT
  Age: 60 Year
  Sex: Female
  Weight: 73 kg

DRUGS (2)
  1. FASLODEX [Suspect]
     Indication: OESTROGEN RECEPTOR ASSAY
     Dosage: 2-250MG MONTH
     Route: 030
     Dates: start: 201206
  2. XGENVA [Concomitant]
     Indication: BONE DISORDER
     Dosage: MONTH
     Route: 058

REACTIONS (3)
  - Back pain [Not Recovered/Not Resolved]
  - Abdominal tenderness [Not Recovered/Not Resolved]
  - Intentional product misuse [Unknown]
